FAERS Safety Report 5023799-2 (Version None)
Quarter: 2006Q2

REPORT INFORMATION
  Report Type: 
  Country: None (occurrence: None)
  Receive Date: 20060606
  Receipt Date: 20060525
  Transmission Date: 20061013
  Serious: Yes (Hospitalization)
  Sender: FDA-Public Use
  Company Number: GXKR2006US02917

PATIENT
  Age: 48 Year
  Sex: Male

DRUGS (1)
  1. METFORMIN [Suspect]
     Dosage: 500 MG, TID

REACTIONS (7)
  - ACUTE PRERENAL FAILURE [None]
  - DRUG LEVEL INCREASED [None]
  - GASTROENTERITIS [None]
  - HAEMODIALYSIS [None]
  - LACTIC ACIDOSIS [None]
  - RENAL FAILURE ACUTE [None]
  - RESPIRATORY DISORDER [None]
